FAERS Safety Report 6402252-5 (Version None)
Quarter: 2009Q4

REPORT INFORMATION
  Report Type: 
  Country: None (occurrence: None)
  Receive Date: 20091015
  Receipt Date: 20091002
  Transmission Date: 20100525
  Serious: Yes (Other)
  Sender: FDA-Public Use
  Company Number: PHEH2008US11463

PATIENT
  Sex: Male

DRUGS (7)
  1. AREDIA [Suspect]
  2. VITAMIN E [Concomitant]
  3. ASCORBIC ACID [Concomitant]
  4. DEXAMETHASONE 0.5MG TAB [Concomitant]
  5. PRILOSEC [Concomitant]
  6. PROCRIT                            /00909301/ [Concomitant]
  7. THALIDOMIDE [Concomitant]

REACTIONS (36)
  - ACIDOSIS [None]
  - ANAEMIA [None]
  - ANXIETY [None]
  - ARTHRALGIA [None]
  - ASTHENIA [None]
  - BACK PAIN [None]
  - BUNDLE BRANCH BLOCK RIGHT [None]
  - DEVICE RELATED SEPSIS [None]
  - DYSURIA [None]
  - EMOTIONAL DISTRESS [None]
  - HEADACHE [None]
  - HYPERCALCAEMIA [None]
  - HYPERPARATHYROIDISM [None]
  - HYPERPHOSPHATAEMIA [None]
  - HYPERTENSION [None]
  - INFECTION [None]
  - INJURY [None]
  - INTERVERTEBRAL DISC COMPRESSION [None]
  - INTERVERTEBRAL DISC PROTRUSION [None]
  - NEPHROLITHIASIS [None]
  - NEUROPATHY PERIPHERAL [None]
  - OSTEOARTHRITIS [None]
  - OSTEONECROSIS [None]
  - OSTEOPENIA [None]
  - OSTEOPOROSIS [None]
  - PAIN [None]
  - PANCYTOPENIA [None]
  - PELVIC FRACTURE [None]
  - RENAL FAILURE ACUTE [None]
  - RENAL FAILURE CHRONIC [None]
  - RIB FRACTURE [None]
  - SCAR [None]
  - SHOULDER DEFORMITY [None]
  - SPINAL FRACTURE [None]
  - SUBDURAL HAEMATOMA [None]
  - THROMBOCYTOPENIA [None]
